FAERS Safety Report 4988088-0 (Version None)
Quarter: 2006Q2

REPORT INFORMATION
  Report Type: 
  Country: None (occurrence: None)
  Receive Date: 20060425
  Receipt Date: 20060420
  Transmission Date: 20061013
  Serious: Yes (Death)
  Sender: FDA-Public Use
  Company Number: 200611572GDS

PATIENT
  Age: 66 Year
  Sex: Female

DRUGS (1)
  1. SORAFENIB [Suspect]
     Indication: RENAL CELL CARCINOMA STAGE UNSPECIFIED
     Dosage: 600 MG, TOTAL DAILY, ORAL
     Route: 048
     Dates: start: 20060322

REACTIONS (1)
  - DEATH [None]
